FAERS Safety Report 19439019 (Version 5)
Quarter: 2021Q4

REPORT INFORMATION
  Report Type: Report from Study
  Country: US (occurrence: US)
  Receive Date: 20210618
  Receipt Date: 20211227
  Transmission Date: 20220303
  Serious: No
  Sender: FDA-Public Use
  Company Number: NVSC2021US126506

PATIENT
  Age: 78 Year
  Sex: Male

DRUGS (2)
  1. ENTRESTO [Suspect]
     Active Substance: SACUBITRIL\VALSARTAN
     Indication: Product used for unknown indication
     Dosage: 0.5 DF, BID (24/26 MG)
     Route: 048
     Dates: start: 202004, end: 202111
  2. ENTRESTO [Suspect]
     Active Substance: SACUBITRIL\VALSARTAN
     Route: 048
     Dates: start: 202004, end: 202111

REACTIONS (13)
  - Cough [Unknown]
  - Blood pressure decreased [Unknown]
  - Visual impairment [Unknown]
  - Muscular weakness [Unknown]
  - Neuralgia [Unknown]
  - Joint swelling [Unknown]
  - Memory impairment [Unknown]
  - Frustration tolerance decreased [Unknown]
  - Rhinorrhoea [Unknown]
  - Insomnia [Unknown]
  - Fatigue [Unknown]
  - Infection [Unknown]
  - Psoriasis [Unknown]

NARRATIVE: CASE EVENT DATE: 20211206
